FAERS Safety Report 20846449 (Version 4)
Quarter: 2022Q3

REPORT INFORMATION
  Report Type: Report from Study
  Country: CA (occurrence: CA)
  Receive Date: 20220518
  Receipt Date: 20220830
  Transmission Date: 20221027
  Serious: Yes (Hospitalization, Other)
  Sender: FDA-Public Use
  Company Number: CA-HLS-202200959

PATIENT
  Age: 42 Year
  Sex: Male

DRUGS (3)
  1. CLOZARIL [Suspect]
     Active Substance: CLOZAPINE
     Indication: Schizophrenia
     Dosage: OCTOBER 10, 2019: 100 MG PO QAM PLUS 475 MG PO QHSOCTOBER 11, 2020: INCREASED TO 100 MG PO QAM PLUS
     Route: 048
     Dates: start: 20190912
  2. UNSPECIFIED INGREDIENT [Concomitant]
     Active Substance: UNSPECIFIED INGREDIENT
     Indication: Anxiety
     Route: 065
  3. UNSPECIFIED INGREDIENT [Concomitant]
     Active Substance: UNSPECIFIED INGREDIENT
     Indication: Pain
     Route: 065

REACTIONS (17)
  - Glycosylated haemoglobin increased [Unknown]
  - Alanine aminotransferase increased [Unknown]
  - Anxiety [Unknown]
  - Blood cholesterol increased [Unknown]
  - Pain [Unknown]
  - Antipsychotic drug level increased [Unknown]
  - Antipsychotic drug level increased [Unknown]
  - Dizziness [Unknown]
  - Glomerular filtration rate decreased [Unknown]
  - Fall [Unknown]
  - Hallucination, auditory [Unknown]
  - Electrocardiogram QT prolonged [Unknown]
  - Low density lipoprotein increased [Unknown]
  - Orthostatic hypotension [Unknown]
  - Psychotic disorder [Unknown]
  - Sinus tachycardia [Unknown]
  - Blood triglycerides increased [Unknown]

NARRATIVE: CASE EVENT DATE: 20220401
